FAERS Safety Report 8837896 (Version 3)
Quarter: 2012Q4

REPORT INFORMATION
  Report Type: 
  Country: GB (occurrence: GB)
  Receive Date: 20121012
  Receipt Date: 20121226
  Transmission Date: 20130627
  Serious: Yes (Other)
  Sender: FDA-Public Use
  Company Number: GB-JNJFOC-20121005515

PATIENT
  Sex: Male

DRUGS (3)
  1. CALPOL INFANT SUSPENSION [Suspect]
     Indication: PYREXIA
     Route: 048
  2. ABIDEC (MULTIVITAMIN) [Concomitant]
     Indication: HYPOVITAMINOSIS
     Route: 048
  3. CALCICHEW D3 [Concomitant]
     Dosage: half tablet a day
     Route: 065

REACTIONS (4)
  - Anaphylactic shock [Recovered/Resolved]
  - Dyspnoea [Recovered/Resolved]
  - Rash [Recovered/Resolved]
  - Lip swelling [Recovered/Resolved]
